FAERS Safety Report 4787083-4 (Version None)
Quarter: 2005Q3

REPORT INFORMATION
  Report Type: 
  Country: None (occurrence: None)
  Receive Date: 20050930
  Receipt Date: 20050920
  Transmission Date: 20060218
  Serious: Yes (Hospitalization)
  Sender: FDA-Public Use
  Company Number: BE 2005 0011

PATIENT
  Age: 79 Year
  Sex: Female

DRUGS (10)
  1. DOTAREM- MEGLUMINE GADOTERATE [Suspect]
     Dosage: 20 ML PER DAY, INTRAVENOUS
     Route: 042
     Dates: start: 20050825, end: 20050825
  2. CORUNO -MOLSIDOMINE [Concomitant]
  3. ALLOPURINOL [Concomitant]
  4. LIPITOR - ATORVASTATINE [Concomitant]
  5. FUROSAMIL - AMILORIDE/FUROSEMIDE [Concomitant]
  6. . [Concomitant]
  7. . [Concomitant]
  8. . [Concomitant]
  9. . [Concomitant]
  10. . [Concomitant]

REACTIONS (7)
  - INFLAMMATION [None]
  - PRURITUS [None]
  - PYREXIA [None]
  - RASH ERYTHEMATOUS [None]
  - RASH PAPULAR [None]
  - SKIN REACTION [None]
  - URTICARIA [None]
